FAERS Safety Report 10031811 (Version 3)
Quarter: 2014Q2

REPORT INFORMATION
  Report Type: Spontaneous
  Country: JP (occurrence: JP)
  Receive Date: 20140324
  Receipt Date: 20140415
  Transmission Date: 20141212
  Serious: Yes (Other)
  Sender: FDA-Public Use
  Company Number: JP-BAYER-2014-039643

PATIENT
  Sex: Male
  Weight: .94 kg

DRUGS (5)
  1. ACETYLSALICYLIC ACID({=100 MG) [Suspect]
     Route: 064
  2. UNFRACTIONATED HEPARIN [Suspect]
     Dosage: UNK
     Route: 064
  3. DALTEPARIN SODIUM [Suspect]
  4. IMMUNOGLOBULIN [Concomitant]
     Dosage: 20 G, UNK
  5. PREDNISOLONE [Concomitant]
     Route: 064

REACTIONS (8)
  - Gastric perforation [None]
  - Pancytopenia [None]
  - Foetal growth restriction [None]
  - Low birth weight baby [None]
  - Premature baby [None]
  - Coagulopathy [None]
  - Fibrinolysis abnormal [None]
  - Foetal exposure during pregnancy [None]
